FAERS Safety Report 6411354-9 (Version None)
Quarter: 2009Q4

REPORT INFORMATION
  Report Type: 
  Country: None (occurrence: None)
  Receive Date: 20091023
  Receipt Date: 20091013
  Transmission Date: 20100525
  Serious: Yes (Hospitalization)
  Sender: FDA-Public Use
  Company Number: US-WYE-H11606809

PATIENT
  Age: 70 Year
  Sex: Male
  Weight: 68.1 kg

DRUGS (6)
  1. PRISTIQ [Suspect]
     Indication: DEPRESSION
     Route: 048
     Dates: start: 20090925, end: 20091002
  2. PRISTIQ [Suspect]
     Route: 048
     Dates: start: 20091009, end: 20091009
  3. ETHANOL [Suspect]
     Dosage: 3  ALCOHLIC DRINKS
     Route: 048
     Dates: start: 20091001, end: 20091001
  4. CRESTOR [Concomitant]
     Dosage: UNKNOWN
  5. LISINOPRIL [Concomitant]
     Dosage: UNKNOWN
  6. LUNESTA [Concomitant]
     Dosage: UNKNOWN

REACTIONS (11)
  - ANXIETY [None]
  - APHASIA [None]
  - CONDITION AGGRAVATED [None]
  - CONVULSION [None]
  - DYSKINESIA [None]
  - HEART RATE INCREASED [None]
  - HYPERHIDROSIS [None]
  - HYPERTENSION [None]
  - PALPITATIONS [None]
  - SPEECH DISORDER [None]
  - TREMOR [None]
